FAERS Safety Report 7991637-1 (Version None)
Quarter: 2011Q4

REPORT INFORMATION
  Report Type: 
  Country: None (occurrence: None)
  Receive Date: 20111219
  Receipt Date: 20111210
  Transmission Date: 20120403
  Serious: Yes (Disabling)
  Sender: FDA-Public Use
  Company Number: PHHY2011FR108868

PATIENT
  Sex: Male

DRUGS (1)
  1. SIMVASTATIN [Suspect]
     Dates: start: 20070801

REACTIONS (6)
  - PAIN IN EXTREMITY [None]
  - NERVE ROOT INJURY [None]
  - BRACHIAL PLEXUS INJURY [None]
  - PARAESTHESIA [None]
  - MUSCULOSKELETAL PAIN [None]
  - INSOMNIA [None]
